FAERS Safety Report 8990116 (Version 1)
Quarter: 2012Q4

REPORT INFORMATION
  Report Type: 
  Country: US (occurrence: US)
  Receive Date: 20121228
  Receipt Date: 20121228
  Transmission Date: 20130627
  Serious: Yes (Other)
  Sender: FDA-Public Use
  Company Number: US-JNJFOC-20121209185

PATIENT
  Age: 66 Year
  Sex: Female
  Weight: 63.5 kg

DRUGS (1)
  1. TYLENOL SINUS CONGESTION + PAIN DAYTIME NO COOL BURST [Suspect]
     Indication: PRODUCT USED FOR UNKNOWN INDICATION
     Route: 048

REACTIONS (2)
  - Cough [Unknown]
  - Haematemesis [Unknown]
